FAERS Safety Report 6377505-X (Version None)
Quarter: 2009Q3

REPORT INFORMATION
  Report Type: 
  Country: None (occurrence: None)
  Receive Date: 20090921
  Receipt Date: 20090915
  Transmission Date: 20100115
  Serious: Yes (Other)
  Sender: FDA-Public Use
  Company Number: WAES 0909USA00957

PATIENT
  Age: 46 Year
  Sex: Female

DRUGS (10)
  1. CRIXIVAN [Suspect]
     Indication: ANTIRETROVIRAL THERAPY
     Dosage: PO
     Route: 048
  2. SUSTIVA [Suspect]
     Indication: ANTIRETROVIRAL THERAPY
     Dosage: PO
     Route: 048
  3. DIDANOSINE [Suspect]
     Indication: ANTIRETROVIRAL THERAPY
  4. STAVUDINE [Suspect]
     Indication: ANTIRETROVIRAL THERAPY
  5. NELFINAVIR MESYLATE [Suspect]
     Indication: ANTIRETROVIRAL THERAPY
  6. NEVIRAPINE [Suspect]
     Indication: ANTIRETROVIRAL THERAPY
  7. LAMIVUDINE [Suspect]
     Indication: ANTIRETROVIRAL THERAPY
  8. LOPINAVIR [Suspect]
     Indication: ANTIRETROVIRAL THERAPY
  9. RITONAVIR [Suspect]
     Indication: ANTIRETROVIRAL THERAPY
  10. ZIDOVUDINE [Suspect]
     Indication: ANTIRETROVIRAL THERAPY

REACTIONS (1)
  - PORTAL HYPERTENSION [None]
